FAERS Safety Report 14257647 (Version 1)
Quarter: 2017Q4

REPORT INFORMATION
  Report Type: Spontaneous
  Country: US (occurrence: US)
  Receive Date: 20171207
  Receipt Date: 20171207
  Transmission Date: 20180321
  Serious: Yes (Other)
  Sender: FDA-Public Use
  Company Number: US-JNJFOC-20171137840

PATIENT
  Age: 28 Year
  Sex: Female

DRUGS (24)
  1. CETIRIZINE HYDROCHLORIDE. [Suspect]
     Active Substance: CETIRIZINE HYDROCHLORIDE
     Indication: WHEEZING
     Route: 065
  2. CETIRIZINE HYDROCHLORIDE. [Suspect]
     Active Substance: CETIRIZINE HYDROCHLORIDE
     Indication: THROAT IRRITATION
     Route: 065
  3. DEXAMETHASONE. [Suspect]
     Active Substance: DEXAMETHASONE
     Indication: COUGH
     Route: 065
  4. DIPHENHYDRAMINE HYDROCHLORIDE. [Suspect]
     Active Substance: DIPHENHYDRAMINE HYDROCHLORIDE
     Indication: WHEEZING
     Route: 065
  5. DEXAMETHASONE. [Suspect]
     Active Substance: DEXAMETHASONE
     Indication: THROAT IRRITATION
     Route: 065
  6. DIPHENHYDRAMINE HYDROCHLORIDE. [Suspect]
     Active Substance: DIPHENHYDRAMINE HYDROCHLORIDE
     Indication: FLUSHING
     Route: 065
  7. DEXAMETHASONE. [Suspect]
     Active Substance: DEXAMETHASONE
     Indication: WHEEZING
     Route: 065
  8. EPINEPHRINE. [Suspect]
     Active Substance: EPINEPHRINE
     Indication: THROAT IRRITATION
     Route: 065
  9. EPINEPHRINE. [Suspect]
     Active Substance: EPINEPHRINE
     Indication: WHEEZING
     Route: 065
  10. IPRATROPIUM [Suspect]
     Active Substance: IPRATROPIUM
     Indication: COUGH
     Route: 065
  11. EPINEPHRINE. [Suspect]
     Active Substance: EPINEPHRINE
     Indication: COUGH
     Route: 065
  12. IPRATROPIUM [Suspect]
     Active Substance: IPRATROPIUM
     Indication: THROAT IRRITATION
     Route: 065
  13. ARFORMOTEROL [Suspect]
     Active Substance: ARFORMOTEROL
     Indication: COUGH
     Route: 065
  14. DIPHENHYDRAMINE HYDROCHLORIDE. [Suspect]
     Active Substance: DIPHENHYDRAMINE HYDROCHLORIDE
     Indication: THROAT IRRITATION
     Route: 065
  15. IPRATROPIUM [Suspect]
     Active Substance: IPRATROPIUM
     Indication: FLUSHING
     Route: 065
  16. IPRATROPIUM [Suspect]
     Active Substance: IPRATROPIUM
     Indication: WHEEZING
     Route: 065
  17. CETIRIZINE HYDROCHLORIDE. [Suspect]
     Active Substance: CETIRIZINE HYDROCHLORIDE
     Indication: COUGH
     Route: 065
  18. CETIRIZINE HYDROCHLORIDE. [Suspect]
     Active Substance: CETIRIZINE HYDROCHLORIDE
     Indication: FLUSHING
     Route: 065
  19. DEXAMETHASONE. [Suspect]
     Active Substance: DEXAMETHASONE
     Indication: FLUSHING
     Route: 065
  20. EPINEPHRINE. [Suspect]
     Active Substance: EPINEPHRINE
     Indication: FLUSHING
     Route: 065
  21. ARFORMOTEROL [Suspect]
     Active Substance: ARFORMOTEROL
     Indication: THROAT IRRITATION
     Route: 065
  22. ARFORMOTEROL [Suspect]
     Active Substance: ARFORMOTEROL
     Indication: FLUSHING
     Route: 065
  23. ARFORMOTEROL [Suspect]
     Active Substance: ARFORMOTEROL
     Indication: WHEEZING
     Route: 065
  24. DIPHENHYDRAMINE HYDROCHLORIDE. [Suspect]
     Active Substance: DIPHENHYDRAMINE HYDROCHLORIDE
     Indication: COUGH
     Route: 065

REACTIONS (3)
  - Flushing [Recovered/Resolved]
  - Urticaria [Recovered/Resolved]
  - Uterine spasm [Recovered/Resolved]
